FAERS Safety Report 7295375-2 (Version None)
Quarter: 2011Q1

REPORT INFORMATION
  Report Type: 
  Country: None (occurrence: None)
  Receive Date: 20110216
  Receipt Date: 20110201
  Transmission Date: 20110831
  Serious: No
  Sender: FDA-Public Use
  Company Number: US-ABBOTT-11P-163-0702436-00

PATIENT
  Sex: Male
  Weight: 99.88 kg

DRUGS (2)
  1. ACIPHEX [Concomitant]
     Indication: PRODUCT USED FOR UNKNOWN INDICATION
  2. SIMCOR [Suspect]
     Indication: PRODUCT USED FOR UNKNOWN INDICATION
     Dates: start: 20110131, end: 20110131

REACTIONS (4)
  - TREMOR [None]
  - ERYTHEMA [None]
  - SKIN BURNING SENSATION [None]
  - HEART RATE INCREASED [None]
